FAERS Safety Report 19197031 (Version 1)
Quarter: 2021Q2

REPORT INFORMATION
  Report Type: Spontaneous
  Country: BR (occurrence: BR)
  Receive Date: 20210430
  Receipt Date: 20210430
  Transmission Date: 20210717
  Serious: Yes (Hospitalization)
  Sender: FDA-Public Use
  Company Number: BR-ABBVIE-21K-020-3884538-00

PATIENT
  Age: 67 Year
  Sex: Female
  Weight: 84 kg

DRUGS (4)
  1. DECITABINE. [Suspect]
     Active Substance: DECITABINE
     Indication: ACUTE MYELOID LEUKAEMIA
     Dosage: 20 MILLIGRAMS PER SQUARE METER, DOSE 35 MILLIGRAMS, DAY 1 TO 5 (CYCLE 1)
     Route: 065
     Dates: start: 20190216
  2. GRANISETRON [Concomitant]
     Active Substance: GRANISETRON
     Indication: PROPHYLAXIS OF NAUSEA AND VOMITING
     Route: 042
  3. DECITABINE. [Suspect]
     Active Substance: DECITABINE
     Dosage: 20 MILLIGRAMS PER SQUARE METER, DOSE 30 MILLIGRAMS, DOSAGE DECREASED
     Route: 065
  4. VENCLEXTA [Suspect]
     Active Substance: VENETOCLAX
     Indication: ACUTE MYELOID LEUKAEMIA
     Dosage: 400 MILLIGRAM, CONTINUOUS AFTER DOSE TITRATION SCHEME
     Route: 048
     Dates: start: 20190216

REACTIONS (3)
  - Neuropathy peripheral [Recovered/Resolved]
  - Tremor [Unknown]
  - Paraesthesia [Unknown]

NARRATIVE: CASE EVENT DATE: 20190220
